FAERS Safety Report 6329013-X (Version None)
Quarter: 2009Q3

REPORT INFORMATION
  Report Type: 
  Country: None (occurrence: None)
  Receive Date: 20090824
  Receipt Date: 20090824
  Transmission Date: 20100115
  Serious: Yes (Disabling, Other)
  Sender: FDA-Public Use
  Company Number: None

PATIENT
  Sex: Female
  Weight: 80.7403 kg

DRUGS (1)
  1. MIRENA [Suspect]
     Indication: CONTRACEPTION
     Dosage: INTER-UTERINE
     Route: 015
     Dates: start: 20070201, end: 20090826

REACTIONS (16)
  - ABDOMINAL DISTENSION [None]
  - ACNE CYSTIC [None]
  - ANXIETY [None]
  - BACTERIAL INFECTION [None]
  - BREAST CYST [None]
  - BRONCHITIS [None]
  - DEPRESSION [None]
  - MENORRHAGIA [None]
  - METRORRHAGIA [None]
  - NIPPLE INFECTION [None]
  - OEDEMA PERIPHERAL [None]
  - PAIN IN EXTREMITY [None]
  - PELVIC PAIN [None]
  - PNEUMONIA [None]
  - URINARY TRACT INFECTION [None]
  - WEIGHT INCREASED [None]
